FAERS Safety Report 5101045-9 (Version None)
Quarter: 2006Q3

REPORT INFORMATION
  Report Type: 
  Country: None (occurrence: None)
  Receive Date: 20060731
  Receipt Date: 20060410
  Transmission Date: 20061208
  Serious: No
  Sender: FDA-Public Use
  Company Number: 2006PV011881

PATIENT
  Age: 58 Year
  Sex: Female
  Weight: 83.4619 kg

DRUGS (4)
  1. BYETTA [Suspect]
     Indication: DIABETES MELLITUS NON-INSULIN-DEPENDENT
     Dosage: SEE IMAGE
     Route: 058
     Dates: start: 20060201, end: 20060329
  2. BYETTA [Suspect]
     Indication: DIABETES MELLITUS NON-INSULIN-DEPENDENT
     Dosage: SEE IMAGE
     Route: 058
     Dates: start: 20060330
  3. BYETTA [Suspect]
  4. GLUCOPHAGE [Concomitant]

REACTIONS (9)
  - ANOREXIA [None]
  - HEADACHE [None]
  - HYPERSOMNIA [None]
  - INJECTION SITE PAIN [None]
  - NAUSEA [None]
  - THIRST [None]
  - TREMOR [None]
  - VOMITING [None]
  - WEIGHT DECREASED [None]
